FAERS Safety Report 6969093-1 (Version None)
Quarter: 2010Q3

REPORT INFORMATION
  Report Type: 
  Country: None (occurrence: None)
  Receive Date: 20100907
  Receipt Date: 20100901
  Transmission Date: 20110219
  Serious: Yes (Death, Life-Threatening, Hospitalization)
  Sender: FDA-Public Use
  Company Number: IT-BRISTOL-MYERS SQUIBB COMPANY-15263049

PATIENT
  Age: 53 Year
  Sex: Male

DRUGS (1)
  1. METFORMIN HCL [Suspect]
     Indication: DIABETES MELLITUS
     Route: 048

REACTIONS (3)
  - LACTIC ACIDOSIS [None]
  - MYOCARDIAL INFARCTION [None]
  - RENAL FAILURE ACUTE [None]
